FAERS Safety Report 21110956 (Version 1)
Quarter: 2022Q3

REPORT INFORMATION
  Report Type: Spontaneous
  Country: US (occurrence: None)
  Receive Date: 20220721
  Receipt Date: 20220721
  Transmission Date: 20221027
  Serious: No
  Sender: FDA-Public Use
  Company Number: None

PATIENT
  Sex: Female

DRUGS (1)
  1. FORTEO [Suspect]
     Active Substance: TERIPARATIDE
     Indication: Senile osteoporosis
     Dosage: OTHER STRENGTH : 250MCG/ML;?OTHER QUANTITY : 250MCG/ML;?FREQUENCY : DAILY;?
     Route: 048
     Dates: start: 20220412

REACTIONS (3)
  - Product storage error [None]
  - Poor quality product administered [None]
  - Myalgia [None]
